FAERS Safety Report 22632627 (Version 1)
Quarter: 2023Q2

REPORT INFORMATION
  Report Type: Spontaneous
  Country: US (occurrence: US)
  Receive Date: 20230623
  Receipt Date: 20230623
  Transmission Date: 20230721
  Serious: Yes (Hospitalization, Other)
  Sender: FDA-Public Use
  Company Number: US-NOVOPROD-1078458

PATIENT
  Sex: Female
  Weight: 90.718 kg

DRUGS (2)
  1. AMITRIPTYLINE [Suspect]
     Active Substance: AMITRIPTYLINE
     Indication: Product used for unknown indication
     Dosage: UNK
  2. NOVOLOG [Suspect]
     Active Substance: INSULIN ASPART
     Indication: Diabetes mellitus
     Dosage: 6 IU, TID(BEFORE BREAKFAST, LUNCH AND DINNER)

REACTIONS (8)
  - Adverse drug reaction [Unknown]
  - Cardiac operation [Unknown]
  - Hypertension [Unknown]
  - Vision blurred [Unknown]
  - Skin burning sensation [Unknown]
  - Weight increased [Unknown]
  - Increased appetite [Unknown]
  - Skin discolouration [Unknown]

NARRATIVE: CASE EVENT DATE: 20230501
